FAERS Safety Report 25174321 (Version 1)
Quarter: 2025Q2

REPORT INFORMATION
  Report Type: Spontaneous
  Country: US (occurrence: None)
  Receive Date: 20250408
  Receipt Date: 20250408
  Transmission Date: 20250717
  Serious: Yes (Life-Threatening, Hospitalization)
  Sender: FDA-CTU
  Company Number: None

PATIENT
  Age: 72 Year
  Sex: Male
  Weight: 98.8 kg

DRUGS (1)
  1. CEFTRIAXONE [Suspect]
     Active Substance: CEFTRIAXONE
     Indication: Urinary tract infection
     Route: 042
     Dates: start: 20250406, end: 20250406

REACTIONS (6)
  - Post procedural complication [None]
  - Burning sensation [None]
  - Erythema [None]
  - Unresponsive to stimuli [None]
  - Agonal respiration [None]
  - Haemodynamic instability [None]

NARRATIVE: CASE EVENT DATE: 20250406
